FAERS Safety Report 14952718 (Version 1)
Quarter: 2018Q2

REPORT INFORMATION
  Report Type: Spontaneous
  Country: CN (occurrence: CN)
  Receive Date: 20180530
  Receipt Date: 20180530
  Transmission Date: 20180711
  Serious: Yes (Other)
  Sender: FDA-Public Use
  Company Number: CN-PFIZER INC-2018212186

PATIENT
  Age: 45 Year
  Sex: Male

DRUGS (11)
  1. ASPIRIN E.C [Concomitant]
     Active Substance: ASPIRIN
     Dosage: 100 MG, 1X/DAY (ONCE IN EVERY NIGHT)
     Route: 048
     Dates: start: 20180511
  2. SODIUM CHLORIDE. [Concomitant]
     Active Substance: SODIUM CHLORIDE
     Dosage: 250 ML, 1X/DAY
     Route: 041
     Dates: start: 20180517
  3. ACARBOSE. [Concomitant]
     Active Substance: ACARBOSE
     Dosage: 50 MG, 3X/DAY
     Route: 048
     Dates: start: 20180514
  4. CLOPIDOGREL HYDROGEN SULPHATE [Concomitant]
     Active Substance: CLOPIDOGREL BISULFATE
     Dosage: 75 MG, 1X/DAY
     Route: 048
     Dates: start: 20180511
  5. PIRACETAM AND SODIUM CHLORIDE [Concomitant]
     Dosage: 10 G, 1X/DAY
     Route: 041
     Dates: start: 20180512
  6. LIPITOR [Suspect]
     Active Substance: ATORVASTATIN CALCIUM
     Dosage: 60 MG, 1X/DAY
     Route: 048
     Dates: start: 20180512
  7. SODIUM CHLORIDE. [Concomitant]
     Active Substance: SODIUM CHLORIDE
     Dosage: 250 ML, 1X/DAY
     Route: 041
     Dates: start: 20180512
  8. GINKGOLIDE [Concomitant]
     Dosage: UNK
     Dates: start: 20180511
  9. LIPITOR [Suspect]
     Active Substance: ATORVASTATIN CALCIUM
     Dosage: 40 MG, 1X/DAY
     Route: 048
     Dates: start: 20180511
  10. SODIUM CHLORIDE. [Concomitant]
     Active Substance: SODIUM CHLORIDE
     Dosage: 250 ML, 1X/DAY
     Route: 041
     Dates: start: 20180511
  11. METFORMIN HYDROCHLORIDE. [Concomitant]
     Active Substance: METFORMIN HYDROCHLORIDE
     Dosage: 0.5 G, 3X/DAY
     Route: 048
     Dates: start: 20180517

REACTIONS (3)
  - Arteriosclerosis [Unknown]
  - Carotid artery stenosis [Unknown]
  - Condition aggravated [Unknown]
